FAERS Safety Report 9034682 (Version 1)
Quarter: 2013Q1

REPORT INFORMATION
  Report Type: Spontaneous
  Country: US (occurrence: None)
  Receive Date: 20130116
  Receipt Date: 20130116
  Transmission Date: 20140127
  Serious: No
  Sender: FDA-Public Use
  Company Number: None

PATIENT
  Age: 45 Year
  Sex: Female
  Weight: 73.48 kg

DRUGS (1)
  1. VENLAFAXINE [Suspect]
     Indication: DEPRESSION
     Dosage: 75 MG ONCE DAILY PO
     Route: 048
     Dates: start: 20121203, end: 20130101

REACTIONS (5)
  - Product substitution issue [None]
  - Depression [None]
  - Product substitution issue [None]
  - Drug ineffective [None]
  - Drug withdrawal syndrome [None]
